FAERS Safety Report 6734990-9 (Version None)
Quarter: 2010Q2

REPORT INFORMATION
  Report Type: 
  Country: None (occurrence: None)
  Receive Date: 20100521
  Receipt Date: 20100512
  Transmission Date: 20101027
  Serious: Yes (Other)
  Sender: FDA-Public Use
  Company Number: BR-PFIZER INC-2010059775

PATIENT
  Age: 43 Year
  Sex: Female
  Weight: 75 kg

DRUGS (5)
  1. DEPO-PROVERA [Suspect]
     Indication: CONTRACEPTION
     Dosage: 150 MG, EVERY 3 MONTHS
     Route: 030
     Dates: start: 20100209
  2. PROPRANOLOL [Concomitant]
     Indication: HYPERTENSION
     Dosage: 40 MG, UNK
  3. DIAZEPAM [Concomitant]
     Indication: INSOMNIA
     Dosage: UNK
  4. NEOSALDINA [Concomitant]
     Indication: HEADACHE
     Dosage: UNK
  5. DIPIRONA [Concomitant]
     Indication: HEADACHE
     Dosage: UNK

REACTIONS (6)
  - BREAST INDURATION [None]
  - BREAST PAIN [None]
  - BREAST SWELLING [None]
  - HEADACHE [None]
  - MENORRHAGIA [None]
  - METRORRHAGIA [None]
